FAERS Safety Report 5061584-6 (Version None)
Quarter: 2006Q3

REPORT INFORMATION
  Report Type: 
  Country: None (occurrence: None)
  Receive Date: 20060721
  Receipt Date: 20060714
  Transmission Date: 20061208
  Serious: Yes (Other)
  Sender: FDA-Public Use
  Company Number: 14407

PATIENT
  Age: 30 Year
  Sex: Male

DRUGS (4)
  1. HALOPERIDOL [Suspect]
     Indication: SCHIZOPHRENIA, UNDIFFERENTIATED TYPE
     Dosage: 5 MG BID
  2. HALOPERIDOL [Suspect]
     Indication: SCHIZOPHRENIA, UNDIFFERENTIATED TYPE
     Dosage: 10 MG BID
  3. ARIPIPRAZOLE [Suspect]
     Indication: SCHIZOPHRENIA, UNDIFFERENTIATED TYPE
     Dosage: 10 MG QD
  4. ARIPRAZOLE [Suspect]
     Indication: SCHIZOPHRENIA, UNDIFFERENTIATED TYPE
     Dosage: 30 MG QD

REACTIONS (9)
  - AGGRESSION [None]
  - AGITATION [None]
  - BLOOD PROLACTIN INCREASED [None]
  - COGWHEEL RIGIDITY [None]
  - DRUG INEFFECTIVE [None]
  - DRUG INTERACTION [None]
  - EXTRAPYRAMIDAL DISORDER [None]
  - PARANOIA [None]
  - PSYCHOTIC DISORDER [None]
